FAERS Safety Report 16193771 (Version 2)
Quarter: 2019Q2

REPORT INFORMATION
  Report Type: Spontaneous
  Country: FR (occurrence: FR)
  Receive Date: 20190413
  Receipt Date: 20190422
  Transmission Date: 20190711
  Serious: Yes (Hospitalization, Congenital Anomaly, Other)
  Sender: FDA-Public Use
  Company Number: FR-TEVA-2019-FR-1035199

PATIENT
  Sex: Female
  Weight: 50 kg

DRUGS (11)
  1. LUTENYL [Suspect]
     Active Substance: NOMEGESTROL ACETATE
     Indication: PRODUCT USED FOR UNKNOWN INDICATION
     Route: 065
     Dates: start: 20150220, end: 20150226
  2. TAZOCILLINE [Suspect]
     Active Substance: PIPERACILLIN SODIUM\TAZOBACTAM SODIUM
     Route: 065
  3. ATARAX [Suspect]
     Active Substance: HYDROXYZINE HYDROCHLORIDE
     Route: 065
     Dates: start: 20150220, end: 20150226
  4. IMIPENEM [Suspect]
     Active Substance: IMIPENEM
     Route: 065
  5. ARACYTINE [Suspect]
     Active Substance: CYTARABINE
     Route: 065
     Dates: start: 20150119
  6. VESANOID [Suspect]
     Active Substance: TRETINOIN
     Indication: ACUTE MYELOID LEUKAEMIA
     Dosage: 3 DOSAGE FORMS DAILY; FOR 15 DAYS EVERY 3 MONTHS
     Route: 048
     Dates: start: 20150622
  7. ALPRAZOLAM. [Concomitant]
     Active Substance: ALPRAZOLAM
  8. DEXAMETHASONE. [Concomitant]
     Active Substance: DEXAMETHASONE
     Indication: DIFFERENTIATION SYNDROME
  9. VESANOID [Suspect]
     Active Substance: TRETINOIN
     Indication: ACUTE MYELOID LEUKAEMIA
     Route: 048
     Dates: start: 20150114, end: 20150217
  10. IDARUBICIN [Suspect]
     Active Substance: IDARUBICIN
     Route: 065
     Dates: start: 20150119
  11. CANCIDAS [Suspect]
     Active Substance: CASPOFUNGIN ACETATE
     Route: 065

REACTIONS (7)
  - Colitis [Recovered/Resolved]
  - Toxic skin eruption [Unknown]
  - Erythema [Unknown]
  - Aplasia [Unknown]
  - Acute sinusitis [Recovered/Resolved]
  - Differentiation syndrome [Recovered/Resolved]
  - Rash [Unknown]

NARRATIVE: CASE EVENT DATE: 201501
